FAERS Safety Report 20663765 (Version 1)
Quarter: 2022Q2

REPORT INFORMATION
  Report Type: Spontaneous
  Country: BR (occurrence: BR)
  Receive Date: 20220401
  Receipt Date: 20220401
  Transmission Date: 20220720
  Serious: Yes (Hospitalization, Other)
  Sender: FDA-Public Use
  Company Number: BR-ABBOTT-2022A-1347235

PATIENT
  Sex: Male
  Weight: 60 kg

DRUGS (3)
  1. DEPAKENE [Suspect]
     Active Substance: VALPROIC ACID
     Indication: Seizure
     Dosage: DAILY DOSE 10 ML
     Route: 048
     Dates: start: 202111
  2. DEPAKENE [Suspect]
     Active Substance: VALPROIC ACID
     Indication: Loss of consciousness
     Dosage: DAILY DOSE 20 ML, 5ML EVERY 12 HOURS THEN INCREASED TO 10ML EVERY 12 HOURS.
     Route: 048
     Dates: end: 202201
  3. DEPAKENE [Suspect]
     Active Substance: VALPROIC ACID
     Route: 048

REACTIONS (8)
  - Seizure [Recovered/Resolved]
  - Drooling [Recovered/Resolved]
  - Thrombosis [Recovered/Resolved]
  - Platelet count decreased [Recovered/Resolved]
  - Rash macular [Recovered/Resolved]
  - Petechiae [Recovered/Resolved]
  - Gingival bleeding [Recovered/Resolved]
  - Drug ineffective [Unknown]

NARRATIVE: CASE EVENT DATE: 20220101
